FAERS Safety Report 14012764 (Version 1)
Quarter: 2017Q3

REPORT INFORMATION
  Report Type: Not Available
  Country: None (occurrence: US)
  Receive Date: 20170926
  Receipt Date: 20170926
  Transmission Date: 20171128
  Serious: No
  Sender: FDA-Public Use
  Company Number: US-AKORN-62835

PATIENT
  Sex: Female

DRUGS (1)
  1. EYE ITCH RELIEF [Suspect]
     Active Substance: KETOTIFEN FUMARATE

REACTIONS (3)
  - Eye pain [Unknown]
  - Drug ineffective [Unknown]
  - Lacrimation increased [Unknown]
